FAERS Safety Report 4642816-2 (Version None)
Quarter: 2005Q2

REPORT INFORMATION
  Report Type: 
  Country: None (occurrence: None)
  Receive Date: 20050421
  Receipt Date: 20050406
  Transmission Date: 20051028
  Serious: Yes (Hospitalization)
  Sender: FDA-Public Use
  Company Number: 213848

PATIENT
  Age: 69 Year
  Sex: Female
  Weight: 63 kg

DRUGS (5)
  1. HERCEPTIN [Suspect]
     Indication: BREAST CANCER METASTATIC
     Dates: start: 20040701, end: 20040831
  2. HERCEPTIN [Suspect]
     Indication: BREAST CANCER METASTATIC
     Dates: start: 20041026, end: 20041122
  3. CO-RENITEC (HYDROCHLOROTHIAZIDE, ENALAPRIL MALEATE) [Concomitant]
  4. CIPROFLOXACIN [Concomitant]
  5. STEROIDS (UNK INGREDIENTS) (STEROID NOS) [Concomitant]

REACTIONS (1)
  - LARYNGEAL OEDEMA [None]
